FAERS Safety Report 6937368-8 (Version None)
Quarter: 2010Q3

REPORT INFORMATION
  Report Type: 
  Country: None (occurrence: None)
  Receive Date: 20100823
  Receipt Date: 20100812
  Transmission Date: 20110219
  Serious: Yes (Other)
  Sender: FDA-Public Use
  Company Number: CHPA2010US13070

PATIENT
  Age: 86 Year
  Sex: Female
  Weight: 46.712 kg

DRUGS (2)
  1. BENEFIBER W/ WHEAT DEXTRIN (NCH) [Suspect]
     Indication: CONSTIPATION
     Dosage: 2 TSP, TID
     Route: 048
     Dates: start: 20100811
  2. PHENOBARBITAL [Concomitant]
     Indication: CONVULSION
     Dosage: UNK, 6 TIMES A DAY
     Route: 048

REACTIONS (2)
  - CONVULSION [None]
  - DIZZINESS [None]
